FAERS Safety Report 10691881 (Version 2)
Quarter: 2015Q1

REPORT INFORMATION
  Report Type: Spontaneous
  Country: AT (occurrence: AT)
  Receive Date: 20150105
  Receipt Date: 20150105
  Transmission Date: 20150720
  Serious: Yes (Other)
  Sender: FDA-Public Use
  Company Number: PHHY2014AT157077

PATIENT
  Sex: Female

DRUGS (3)
  1. EPILAN D [Concomitant]
     Indication: EPILEPSY
     Dosage: 150 OT, UNK
     Route: 048
     Dates: start: 20080325
  2. VOTUBIA [Suspect]
     Active Substance: EVEROLIMUS
     Indication: ASTROCYTOMA, LOW GRADE
     Dosage: 2.5 MG, QD
     Route: 065
     Dates: start: 20140219, end: 20140412
  3. ZONEGRAN [Concomitant]
     Active Substance: ZONISAMIDE
     Indication: EPILEPSY
     Dosage: 200 OT, UNK
     Route: 048
     Dates: start: 20090703

REACTIONS (2)
  - Diet refusal [Recovered/Resolved]
  - Aphthous stomatitis [Recovered/Resolved]

NARRATIVE: CASE EVENT DATE: 20140306
